FAERS Safety Report 24130005 (Version 1)
Quarter: 2024Q3

REPORT INFORMATION
  Report Type: Spontaneous
  Country: US (occurrence: US)
  Receive Date: 20240724
  Receipt Date: 20240724
  Transmission Date: 20241017
  Serious: No
  Sender: ROCHE
  Company Number: US-ROCHE-10000033847

PATIENT
  Age: 19 Year
  Sex: Male

DRUGS (6)
  1. BEVACIZUMAB [Suspect]
     Active Substance: BEVACIZUMAB
     Indication: Retinal vein occlusion
     Dosage: (0.05 ML) PER INJECTION
     Route: 050
  2. BEVACIZUMAB [Suspect]
     Active Substance: BEVACIZUMAB
     Indication: Retinal detachment
     Dosage: (0.05 ML) PER INJECTION
     Route: 050
  3. PREDNISONE [Concomitant]
     Active Substance: PREDNISONE
     Route: 048
  4. LATANOPROST [Concomitant]
     Active Substance: LATANOPROST
     Dosage: DAILY
  5. TIMOLOL [Concomitant]
     Active Substance: TIMOLOL
     Dosage: DAILY
  6. DORZOLAMIDE [Concomitant]
     Active Substance: DORZOLAMIDE

REACTIONS (3)
  - Off label use [Unknown]
  - Off label use [Unknown]
  - No adverse event [Unknown]
